FAERS Safety Report 6585780-1 (Version None)
Quarter: 2010Q1

REPORT INFORMATION
  Report Type: 
  Country: None (occurrence: None)
  Receive Date: 20100217
  Receipt Date: 20100209
  Transmission Date: 20100710
  Serious: Yes (Death)
  Sender: FDA-Public Use
  Company Number: US-B.I. PHARMACEUTICALS,INC./RIDGEFIELD-2010-DE-01024GD

PATIENT
  Age: 69 Year
  Sex: Female

DRUGS (10)
  1. PARACETAMOL [Suspect]
     Route: 048
  2. TIOTROPIUM [Suspect]
     Route: 048
  3. DULOXETINE [Suspect]
     Route: 048
  4. QUETIAPINE [Suspect]
     Route: 048
  5. SALICYLIC ACID [Suspect]
     Route: 048
  6. CLOPIDOGREL [Suspect]
     Route: 048
  7. ZOLPIDEM [Suspect]
     Route: 048
  8. FLUTICASONE/SALMETEROL [Suspect]
     Route: 048
  9. BENZODIAZEPINE [Suspect]
     Route: 048
  10. SOLIFENACIN [Suspect]
     Route: 048

REACTIONS (2)
  - COMPLETED SUICIDE [None]
  - DRUG ABUSE [None]
